FAERS Safety Report 18420544 (Version 1)
Quarter: 2020Q4

REPORT INFORMATION
  Report Type: Spontaneous
  Country: CA (occurrence: CA)
  Receive Date: 20201023
  Receipt Date: 20201023
  Transmission Date: 20210114
  Serious: Yes (Other)
  Sender: FDA-Public Use
  Company Number: CA-PFIZER INC-2020064962

PATIENT
  Age: 55 Year
  Sex: Female

DRUGS (1)
  1. ADVIL [Suspect]
     Active Substance: IBUPROFEN
     Dosage: UNK

REACTIONS (4)
  - Swollen tongue [Recovered/Resolved]
  - Anaphylactic reaction [Unknown]
  - Drug hypersensitivity [Unknown]
  - Lip swelling [Recovered/Resolved]
